FAERS Safety Report 23986625 (Version 2)
Quarter: 2024Q4

REPORT INFORMATION
  Report Type: Spontaneous
  Country: US (occurrence: US)
  Receive Date: 20240618
  Receipt Date: 20241230
  Transmission Date: 20250114
  Serious: No
  Sender: CSL BEHRING
  Company Number: US-BEH-2024173242

PATIENT
  Age: 56 Year
  Sex: Female

DRUGS (2)
  1. HAEGARDA [Suspect]
     Active Substance: HUMAN C1-ESTERASE INHIBITOR
     Indication: Hereditary angioedema
     Dosage: 5182 IU, BIW
     Route: 058
  2. HAEGARDA [Suspect]
     Active Substance: HUMAN C1-ESTERASE INHIBITOR
     Indication: Prophylaxis
     Dosage: UNK
     Route: 065
     Dates: start: 20240520

REACTIONS (5)
  - Injection site swelling [Unknown]
  - Injection site erythema [Unknown]
  - Injection site pruritus [Unknown]
  - Incorrect drug administration rate [Unknown]
  - Product container issue [Unknown]

NARRATIVE: CASE EVENT DATE: 20240520
